FAERS Safety Report 14361415 (Version 8)
Quarter: 2019Q2

REPORT INFORMATION
  Report Type: Spontaneous
  Country: US (occurrence: US)
  Receive Date: 20180108
  Receipt Date: 20190409
  Transmission Date: 20190711
  Serious: Yes (Other)
  Sender: FDA-Public Use
  Company Number: US-BRISTOL-MYERS SQUIBB COMPANY-BMS-2017-119488

PATIENT
  Sex: Female
  Weight: 89.8 kg

DRUGS (1)
  1. ORENCIA [Suspect]
     Active Substance: ABATACEPT
     Indication: RHEUMATOID ARTHRITIS
     Dosage: 125 MG, QWK
     Route: 058
     Dates: start: 201709

REACTIONS (11)
  - Fall [Unknown]
  - Cough [Unknown]
  - Influenza like illness [Unknown]
  - Product dose omission [Unknown]
  - Head injury [Unknown]
  - Muscle strain [Unknown]
  - Nasopharyngitis [Unknown]
  - Rhinorrhoea [Unknown]
  - Tooth abscess [Unknown]
  - Malaise [Unknown]
  - Viral upper respiratory tract infection [Unknown]
